FAERS Safety Report 4724318-8 (Version None)
Quarter: 2005Q3

REPORT INFORMATION
  Report Type: 
  Country: None (occurrence: None)
  Receive Date: 20050722
  Receipt Date: 20050708
  Transmission Date: 20060218
  Serious: Yes (Hospitalization)
  Sender: FDA-Public Use
  Company Number: 2005S1005930

PATIENT
  Age: 64 Year
  Sex: Female

DRUGS (11)
  1. APOMORPHINE HYDROCHLORIDE (APOMORPHINE HYDROCHLORIDE) (10 MG/ML) [Suspect]
     Indication: PARKINSON'S DISEASE
     Dosage: 40 MG; QD; SC
     Route: 058
     Dates: start: 20040901
  2. PERGOLIDE MESYLATE [Concomitant]
  3. LEVODOPA/BENSERAZIDE HYDROCHLORIDE [Concomitant]
  4. AMANTADINE [Concomitant]
  5. AMINOPHYLLINE [Concomitant]
  6. IPRATROPIUM BROMIDE [Concomitant]
  7. FLUTICASONE PROPIONATE/SALMETEROL [Concomitant]
  8. AMITRIPTYLINE [Concomitant]
  9. TRAMADOL [Concomitant]
  10. LEVOTHYROXINE SODIUM [Concomitant]
  11. ALBUTEROL SULFATE HFA [Concomitant]

REACTIONS (2)
  - ASTHMA [None]
  - CONDITION AGGRAVATED [None]
